FAERS Safety Report 18187141 (Version 3)
Quarter: 2020Q4

REPORT INFORMATION
  Report Type: Spontaneous
  Country: US (occurrence: US)
  Receive Date: 20200824
  Receipt Date: 20201009
  Transmission Date: 20210113
  Serious: No
  Sender: FDA-Public Use
  Company Number: US-PFIZER INC-2020093847

PATIENT
  Age: 9 Year
  Sex: Female
  Weight: 23.59 kg

DRUGS (2)
  1. GENOTROPIN [Suspect]
     Active Substance: SOMATROPIN
     Dosage: 0.8 MG, DAILY (ADMINISTERED TO THIGHS 7DAYS A WEEK)
     Dates: start: 2020, end: 20200817
  2. GENOTROPIN [Suspect]
     Active Substance: SOMATROPIN
     Indication: SMALL FOR DATES BABY
     Dosage: 0.9 MG, DAILY

REACTIONS (4)
  - Device breakage [Unknown]
  - Product prescribing error [Unknown]
  - Device leakage [Unknown]
  - Drug dose omission by device [Unknown]

NARRATIVE: CASE EVENT DATE: 20200817
